FAERS Safety Report 6448567-6 (Version None)
Quarter: 2009Q4

REPORT INFORMATION
  Report Type: 
  Country: None (occurrence: None)
  Receive Date: 20091120
  Receipt Date: 20091109
  Transmission Date: 20100525
  Serious: Yes (Other)
  Sender: FDA-Public Use
  Company Number: NL-BAYER-200513095GDS

PATIENT
  Age: 33 Year
  Sex: Female

DRUGS (2)
  1. AVELOX [Suspect]
     Indication: RESPIRATORY TRACT INFECTION
     Dosage: TOTAL DAILY DOSE: 400 MG  UNIT DOSE: 400 MG
     Route: 048
     Dates: start: 20050424
  2. FLIXOTIDE [Concomitant]
     Indication: RHINITIS ALLERGIC
     Route: 055

REACTIONS (5)
  - EYE DISORDER [None]
  - EYE PAIN [None]
  - IRIS ATROPHY [None]
  - PHOTOPHOBIA [None]
  - PUPILLARY REFLEX IMPAIRED [None]
